FAERS Safety Report 10142219 (Version 2)
Quarter: 2014Q2

REPORT INFORMATION
  Report Type: Report from Study
  Country: US (occurrence: US)
  Receive Date: 20140429
  Receipt Date: 20140619
  Transmission Date: 20141212
  Serious: Yes (Other)
  Sender: FDA-Public Use
  Company Number: PHEH2014US008427

PATIENT
  Age: 44 Year
  Sex: Female

DRUGS (2)
  1. TOBI PODHALER [Suspect]
     Dosage: UNK
     Dates: start: 201312, end: 20140109
  2. TOBI [Suspect]
     Indication: CYSTIC FIBROSIS
     Dosage: 1 DF (300 MG/ 5 ML), BID
     Route: 055

REACTIONS (4)
  - Pneumonia [Recovering/Resolving]
  - Dyspnoea [Unknown]
  - Cough [Unknown]
  - Multiple-drug resistance [Unknown]
